FAERS Safety Report 9757665 (Version 1)
Quarter: 2013Q4

REPORT INFORMATION
  Report Type: Spontaneous
  Country: US (occurrence: US)
  Receive Date: 20131216
  Receipt Date: 20131216
  Transmission Date: 20140711
  Serious: No
  Sender: FDA-Public Use
  Company Number: US-009507513-1312USA005444

PATIENT
  Age: 15 Year
  Sex: Female
  Weight: 75.28 kg

DRUGS (3)
  1. IMPLANON [Suspect]
     Indication: MENSTRUAL CYCLE MANAGEMENT
     Dosage: 3 YEAR IMPLANT
     Route: 059
     Dates: start: 20110624
  2. IMPLANON [Suspect]
     Indication: CONTRACEPTION
     Dosage: UNK
     Route: 059
     Dates: start: 20080624
  3. IMPLANON [Suspect]
     Indication: MUSCLE SPASMS

REACTIONS (3)
  - Haemorrhage [Unknown]
  - Metrorrhagia [Unknown]
  - Muscle spasms [Unknown]
